FAERS Safety Report 6873474-4 (Version None)
Quarter: 2010Q3

REPORT INFORMATION
  Report Type: 
  Country: None (occurrence: None)
  Receive Date: 20100723
  Receipt Date: 20090108
  Transmission Date: 20110219
  Serious: Yes (Other)
  Sender: FDA-Public Use
  Company Number: US-PFIZER INC-2009153483

PATIENT
  Sex: Male
  Weight: 70.306 kg

DRUGS (1)
  1. CHANTIX [Suspect]
     Dates: start: 20081231, end: 20090108

REACTIONS (2)
  - FALL [None]
  - LOSS OF CONSCIOUSNESS [None]
